FAERS Safety Report 18261068 (Version 3)
Quarter: 2020Q3

REPORT INFORMATION
  Report Type: Report from Study
  Country: None (occurrence: US)
  Receive Date: 20200914
  Receipt Date: 20200928
  Transmission Date: 20201103
  Serious: Yes (Hospitalization, Other)
  Sender: FDA-Public Use
  Company Number: US-ABBVIE-20K-163-3561367-00

PATIENT
  Sex: Male

DRUGS (2)
  1. GAZYVA [Concomitant]
     Active Substance: OBINUTUZUMAB
     Indication: CHRONIC LYMPHOCYTIC LEUKAEMIA
  2. VENCLEXTA [Suspect]
     Active Substance: VENETOCLAX
     Indication: CHRONIC LYMPHOCYTIC LEUKAEMIA
     Route: 048
     Dates: start: 20200401, end: 20200907

REACTIONS (13)
  - Pneumonia [Unknown]
  - Acute kidney injury [Unknown]
  - Intentional medical device removal by patient [Unknown]
  - Mental status changes [Unknown]
  - Illness [Unknown]
  - Vascular pseudoaneurysm [Unknown]
  - Nasopharyngitis [Unknown]
  - Sepsis [Unknown]
  - Weight increased [Recovering/Resolving]
  - Atrial fibrillation [Unknown]
  - Diarrhoea [Unknown]
  - Neutropenia [Unknown]
  - Traumatic haemorrhage [Unknown]

NARRATIVE: CASE EVENT DATE: 2020
